FAERS Safety Report 20673503 (Version 1)
Quarter: 2022Q2

REPORT INFORMATION
  Report Type: Other
  Country: GB (occurrence: GB)
  Receive Date: 20220405
  Receipt Date: 20220405
  Transmission Date: 20220721
  Serious: No
  Sender: FDA-Public Use
  Company Number: GB-MHRA-MED-202203211819177320-TQQNV

PATIENT
  Age: 41 Year
  Sex: Female
  Weight: 80 kg

DRUGS (3)
  1. LANSOPRAZOLE [Suspect]
     Active Substance: LANSOPRAZOLE
     Indication: Toothache
     Dosage: 1200 MILLIGRAM, QD (TABLET)
     Route: 065
     Dates: start: 20220321, end: 20220321
  2. METRONIDAZOLE [Suspect]
     Active Substance: METRONIDAZOLE
     Indication: Toothache
     Dosage: 1200 MILLIGRAM, QD
     Route: 065
     Dates: start: 20220321, end: 20220321
  3. CLARITHROMYCIN [Suspect]
     Active Substance: CLARITHROMYCIN
     Indication: Toothache
     Dosage: 1200 MILLIGRAM, QD
     Route: 065
     Dates: start: 20220321, end: 20220321

REACTIONS (1)
  - Tinnitus [Not Recovered/Not Resolved]

NARRATIVE: CASE EVENT DATE: 20220321
